FAERS Safety Report 11924381 (Version 1)
Quarter: 2016Q1

REPORT INFORMATION
  Report Type: Report from Study
  Country: AR (occurrence: AR)
  Receive Date: 20160118
  Receipt Date: 20160118
  Transmission Date: 20160526
  Serious: Yes (Death, Hospitalization)
  Sender: FDA-Public Use
  Company Number: AR-BIOGEN-2016BI00171721

PATIENT
  Sex: Female

DRUGS (5)
  1. AVONEX [Suspect]
     Active Substance: INTERFERON BETA-1A
     Indication: MULTIPLE SCLEROSIS
     Route: 065
     Dates: start: 20140106, end: 201512
  2. N-ACETYLCYSTEINE [Concomitant]
     Active Substance: ACETYLCYSTEINE
     Indication: PRODUCT USED FOR UNKNOWN INDICATION
     Route: 065
  3. VITAMIN C [Concomitant]
     Active Substance: ASCORBIC ACID
     Indication: PRODUCT USED FOR UNKNOWN INDICATION
     Route: 065
  4. AVONEX [Suspect]
     Active Substance: INTERFERON BETA-1A
     Dosage: AVONEX PFS WAS TEMPORARILY SUSPENDED DINCE NOV 2011 UP TO FEB 2012
     Route: 065
     Dates: start: 2000, end: 201312
  5. AVONEX [Suspect]
     Active Substance: INTERFERON BETA-1A
     Dosage: AVONEX PFS WAS TEMPORARILY SUSPENDED DINCE NOV 2011 UP TO FEB 2012
     Route: 065
     Dates: start: 201202, end: 201312

REACTIONS (3)
  - Urinary tract infection [Unknown]
  - General physical health deterioration [Unknown]
  - Cardio-respiratory arrest [Fatal]
